FAERS Safety Report 7009458-5 (Version None)
Quarter: 2010Q3

REPORT INFORMATION
  Report Type: 
  Country: None (occurrence: None)
  Receive Date: 20100923
  Receipt Date: 20100915
  Transmission Date: 20110219
  Serious: Yes (Life-Threatening, Other)
  Sender: FDA-Public Use
  Company Number: FR-AMGEN-QUU438306

PATIENT
  Sex: Female

DRUGS (11)
  1. ARANESP [Suspect]
     Indication: PRODUCT USED FOR UNKNOWN INDICATION
     Route: 058
     Dates: start: 20100301, end: 20100601
  2. THALIDOMIDE [Concomitant]
     Route: 048
     Dates: start: 20100301, end: 20100629
  3. ALKERAN [Concomitant]
     Dates: start: 20100501
  4. PREDNISONE [Concomitant]
  5. SIMVASTATIN [Concomitant]
  6. EFFEXOR [Concomitant]
  7. IXPRIM [Concomitant]
  8. ACTONEL [Concomitant]
  9. ZYLORIC [Concomitant]
  10. SODIUM BICARBONATE [Concomitant]
  11. ASPEGIC 1000 [Concomitant]
     Dates: end: 20100701

REACTIONS (1)
  - REVERSIBLE POSTERIOR LEUKOENCEPHALOPATHY SYNDROME [None]
